FAERS Safety Report 16568723 (Version 2)
Quarter: 2019Q3

REPORT INFORMATION
  Report Type: Report from Study
  Country: US (occurrence: US)
  Receive Date: 20190713
  Receipt Date: 20190820
  Transmission Date: 20191004
  Serious: Yes (Other)
  Sender: FDA-Public Use
  Company Number: US-UCBSA-2019017345

PATIENT
  Age: 73 Year
  Sex: Female
  Weight: 207 kg

DRUGS (1)
  1. ROTIGOTINE [Suspect]
     Active Substance: ROTIGOTINE
     Indication: PARKINSON^S DISEASE
     Dosage: 4 MILLIGRAM, ONCE DAILY (QD)
     Dates: start: 20190322

REACTIONS (8)
  - Application site pruritus [Not Recovered/Not Resolved]
  - Pain in extremity [Recovered/Resolved]
  - Application site erythema [Not Recovered/Not Resolved]
  - Dysgeusia [Unknown]
  - Product quality issue [Unknown]
  - Arthritis [Recovered/Resolved]
  - Upper respiratory tract infection [Not Recovered/Not Resolved]
  - Product adhesion issue [Unknown]

NARRATIVE: CASE EVENT DATE: 2019
